FAERS Safety Report 24192170 (Version 1)
Quarter: 2024Q3

REPORT INFORMATION
  Report Type: Report from Study
  Country: CA (occurrence: CA)
  Receive Date: 20240809
  Receipt Date: 20240809
  Transmission Date: 20241016
  Serious: Yes (Death)
  Sender: ROCHE
  Company Number: CA-ROCHE-10000051382

PATIENT
  Age: 93 Year
  Sex: Female

DRUGS (1)
  1. VABYSMO [Suspect]
     Active Substance: FARICIMAB\FARICIMAB-SVOA
     Indication: Age-related macular degeneration
     Dosage: IVL, SOL, 6MG/0.05 ML
     Route: 050
     Dates: start: 20231101

REACTIONS (1)
  - Death [Fatal]
